FAERS Safety Report 18605228 (Version 2)
Quarter: 2021Q1

REPORT INFORMATION
  Report Type: Spontaneous
  Country: LY (occurrence: LY)
  Receive Date: 20201211
  Receipt Date: 20210104
  Transmission Date: 20210419
  Serious: Yes (Hospitalization, Other)
  Sender: FDA-Public Use
  Company Number: LY-JNJFOC-20201217814

PATIENT
  Age: 25 Year
  Sex: Male

DRUGS (9)
  1. DEPAKINE [VALPROIC ACID] [Suspect]
     Active Substance: VALPROIC ACID
     Route: 065
  2. INVEGA SUSTENNA [Suspect]
     Active Substance: PALIPERIDONE PALMITATE
  3. RISPERDAL [Suspect]
     Active Substance: RISPERIDONE
     Route: 048
  4. DEPAKINE [VALPROIC ACID] [Suspect]
     Active Substance: VALPROIC ACID
     Indication: SCHIZOAFFECTIVE DISORDER
     Route: 065
  5. INVEGA SUSTENNA [Suspect]
     Active Substance: PALIPERIDONE PALMITATE
     Indication: SCHIZOAFFECTIVE DISORDER
     Route: 030
  6. INVEGA SUSTENNA [Suspect]
     Active Substance: PALIPERIDONE PALMITATE
  7. RISPERDAL [Suspect]
     Active Substance: RISPERIDONE
     Indication: SCHIZOAFFECTIVE DISORDER
     Route: 048
  8. RISPERDAL [Suspect]
     Active Substance: RISPERIDONE
     Route: 048
  9. DEPAKINE [VALPROIC ACID] [Suspect]
     Active Substance: VALPROIC ACID
     Route: 065

REACTIONS (4)
  - Drug abuse [Unknown]
  - Schizoaffective disorder [Unknown]
  - Incorrect dose administered [Unknown]
  - Off label use [Unknown]
